FAERS Safety Report 8608472 (Version 6)
Quarter: 2014Q4

REPORT INFORMATION
  Report Type: Spontaneous
  Country: US (occurrence: US)
  Receive Date: 20120611
  Receipt Date: 20141020
  Transmission Date: 20150529
  Serious: Yes (Hospitalization, Disabling)
  Sender: FDA-Public Use
  Company Number: US-ASTRAZENECA-2012SE36368

PATIENT
  Age: 19808 Day
  Sex: Female

DRUGS (18)
  1. NEXIUM [Suspect]
     Active Substance: ESOMEPRAZOLE MAGNESIUM
     Indication: GASTROOESOPHAGEAL REFLUX DISEASE
     Route: 048
     Dates: start: 2003, end: 2011
  2. NEXIUM [Suspect]
     Active Substance: ESOMEPRAZOLE MAGNESIUM
     Indication: GASTROOESOPHAGEAL REFLUX DISEASE
     Route: 048
     Dates: start: 20040327
  3. TUMS [Concomitant]
     Active Substance: CALCIUM CARBONATE
     Indication: BONE LOSS
     Dates: start: 1997
  4. TUMS [Concomitant]
     Active Substance: CALCIUM CARBONATE
     Indication: BONE LOSS
     Dosage: AS NEEDED
     Dates: start: 2006
  5. VICODIN [Concomitant]
     Active Substance: ACETAMINOPHEN\HYDROCODONE BITARTRATE
     Dosage: 5/500 4 HRLY, PRN
     Route: 048
     Dates: start: 20071107
  6. TIZANIDINE (TIZANIDINE) [Concomitant]
     Active Substance: TIZANIDINE
     Route: 048
  7. PREVICID [Concomitant]
     Indication: GASTROOESOPHAGEAL REFLUX DISEASE
     Dates: start: 2003, end: 2003
  8. NEXIUM [Suspect]
     Active Substance: ESOMEPRAZOLE MAGNESIUM
     Indication: GASTROOESOPHAGEAL REFLUX DISEASE
     Route: 048
     Dates: start: 20051005
  9. TUMS [Concomitant]
     Active Substance: CALCIUM CARBONATE
     Indication: BONE LOSS
     Dates: start: 2000, end: 2003
  10. PAROXETINE [Concomitant]
     Active Substance: PAROXETINE\PAROXETINE HYDROCHLORIDE
  11. PAXIL [Concomitant]
     Active Substance: PAROXETINE HYDROCHLORIDE
     Route: 048
  12. ALENDRONATE [Concomitant]
     Active Substance: ALENDRONATE SODIUM
     Route: 048
  13. ASA [Concomitant]
     Active Substance: ASPIRIN
  14. CALCIUM VIT D [Concomitant]
  15. NEXIUM [Suspect]
     Active Substance: ESOMEPRAZOLE MAGNESIUM
     Indication: GASTROOESOPHAGEAL REFLUX DISEASE
     Dosage: 500 MG, EVERY OTHER DAY
     Route: 048
     Dates: start: 20071107
  16. TUMS [Concomitant]
     Active Substance: CALCIUM CARBONATE
     Indication: DYSPEPSIA
     Dates: start: 1997
  17. TUMS [Concomitant]
     Active Substance: CALCIUM CARBONATE
     Indication: DYSPEPSIA
     Dates: start: 2000, end: 2003
  18. TUMS [Concomitant]
     Active Substance: CALCIUM CARBONATE
     Indication: DYSPEPSIA
     Dosage: AS NEEDED
     Dates: start: 2006

REACTIONS (14)
  - Osteopenia [Unknown]
  - Osteoporosis [Unknown]
  - Back pain [Unknown]
  - Headache [Unknown]
  - Pain [Unknown]
  - Multiple fractures [Unknown]
  - Ankle fracture [Unknown]
  - Neck pain [Unknown]
  - Fall [Unknown]
  - Cervical vertebral fracture [Unknown]
  - Intervertebral disc protrusion [Unknown]
  - Depression [Unknown]
  - Arthritis [Unknown]
  - Forearm fracture [Unknown]

NARRATIVE: CASE EVENT DATE: 20071107
